FAERS Safety Report 7654481-0 (Version None)
Quarter: 2011Q3

REPORT INFORMATION
  Report Type: 
  Country: None (occurrence: None)
  Receive Date: 20110803
  Receipt Date: 20110725
  Transmission Date: 20111222
  Serious: Yes (Other)
  Sender: FDA-Public Use
  Company Number: CA-ASTRAZENECA-2011SE44561

PATIENT
  Age: 80 Year
  Sex: Female

DRUGS (5)
  1. NEXIUM [Suspect]
     Indication: DYSPEPSIA
     Route: 048
  2. BLOOD PRESSURE MEDICATION [Concomitant]
  3. HORMONES [Concomitant]
  4. SOFLAX [Concomitant]
  5. GLEEVEC [Concomitant]

REACTIONS (3)
  - ABDOMINAL NEOPLASM [None]
  - HAEMORRHAGE [None]
  - HAEMATEMESIS [None]
